FAERS Safety Report 7638693-8 (Version None)
Quarter: 2011Q3

REPORT INFORMATION
  Report Type: 
  Country: None (occurrence: None)
  Receive Date: 20110727
  Receipt Date: 20110722
  Transmission Date: 20111222
  Serious: Yes (Life-Threatening)
  Sender: FDA-Public Use
  Company Number: DE-SANOFI-AVENTIS-2011SA047213

PATIENT
  Age: 62 Year
  Sex: Male
  Weight: 83.5 kg

DRUGS (8)
  1. ELOXATIN [Suspect]
     Route: 041
  2. LEUCOVORIN CALCIUM [Concomitant]
     Route: 041
  3. AVASTIN [Concomitant]
     Route: 041
     Dates: start: 20110713, end: 20110713
  4. ELOXATIN [Suspect]
     Route: 041
     Dates: start: 20110713, end: 20110713
  5. FLUOROURACIL [Concomitant]
     Dosage: 400 MG BOLUS AND 2400 MG INFUSION
     Route: 041
     Dates: start: 20110713, end: 20110713
  6. LEUCOVORIN CALCIUM [Concomitant]
     Route: 041
     Dates: start: 20110713, end: 20110713
  7. FLUOROURACIL [Concomitant]
     Route: 041
  8. AVASTIN [Concomitant]
     Route: 041

REACTIONS (6)
  - ERYTHEMA [None]
  - PRURITUS [None]
  - DYSPNOEA [None]
  - PARAESTHESIA [None]
  - RASH [None]
  - RESTLESSNESS [None]
